FAERS Safety Report 11509776 (Version 1)
Quarter: 2015Q3

REPORT INFORMATION
  Report Type: Spontaneous
  Country: US (occurrence: US)
  Receive Date: 20150915
  Receipt Date: 20150915
  Transmission Date: 20151125
  Serious: No
  Sender: FDA-Public Use
  Company Number: US-JNJFOC-20150708693

PATIENT
  Age: 57 Year
  Sex: Female
  Weight: 92.53 kg

DRUGS (3)
  1. TYLENOL [Suspect]
     Active Substance: ACETAMINOPHEN
     Route: 048
  2. TYLENOL [Suspect]
     Active Substance: ACETAMINOPHEN
     Indication: HEADACHE
     Route: 048
  3. PAIN MEDICATION NOS [Concomitant]
     Indication: PAIN
     Route: 065

REACTIONS (1)
  - Palpitations [Recovered/Resolved]
